FAERS Safety Report 8240282-1 (Version None)
Quarter: 2012Q1

REPORT INFORMATION
  Report Type: 
  Country: None (occurrence: None)
  Receive Date: 20120328
  Receipt Date: 20120328
  Transmission Date: 20120608
  Serious: Yes (Hospitalization)
  Sender: FDA-Public Use
  Company Number: None

PATIENT
  Age: 69 Year
  Sex: Female
  Weight: 122 kg

DRUGS (10)
  1. BISACODYL [Concomitant]
  2. MORPHINE [Concomitant]
  3. XARELTO [Suspect]
     Indication: PROPHYLAXIS
     Dosage: 10 MG
     Route: 048
     Dates: start: 20120302, end: 20120303
  4. TYLENOL [Concomitant]
     Route: 048
  5. MAGNESIUM HYDROXIDE TAB [Concomitant]
  6. ZOFRAN [Concomitant]
  7. FERROUS SULFATE TAB [Concomitant]
     Route: 048
  8. COLACE [Concomitant]
     Route: 048
  9. REGLAN [Concomitant]
  10. OXYCODONE HCL [Concomitant]
     Route: 048

REACTIONS (3)
  - PAIN IN EXTREMITY [None]
  - TREATMENT FAILURE [None]
  - VENOUS THROMBOSIS [None]
